FAERS Safety Report 25831856 (Version 1)
Quarter: 2025Q3

REPORT INFORMATION
  Report Type: Spontaneous
  Country: US (occurrence: None)
  Receive Date: 20250919
  Receipt Date: 20250919
  Transmission Date: 20251020
  Serious: Yes (Hospitalization)
  Sender: FDA-CTU
  Company Number: None

PATIENT
  Sex: Female

DRUGS (1)
  1. DALFAMPRIDINE [Suspect]
     Active Substance: DALFAMPRIDINE
     Indication: Multiple sclerosis
     Dosage: 10 MG TWICE A DAY ORAL
     Route: 048
     Dates: start: 20181003

REACTIONS (4)
  - Myocardial infarction [None]
  - Seizure [None]
  - Amnesia [None]
  - Therapy cessation [None]
